FAERS Safety Report 14990845 (Version 1)
Quarter: 2018Q2

REPORT INFORMATION
  Report Type: Spontaneous
  Country: RU (occurrence: RU)
  Receive Date: 20180608
  Receipt Date: 20180608
  Transmission Date: 20180711
  Serious: Yes (Hospitalization, Other)
  Sender: FDA-Public Use
  Company Number: RU-ASTRAZENECA-2018SE12120

PATIENT
  Age: 75 Year
  Sex: Male
  Weight: 93 kg

DRUGS (7)
  1. CARDIOMAGNYL [Concomitant]
     Active Substance: ASPIRIN\MAGNESIUM HYDROXIDE
  2. VALSARTAN. [Concomitant]
     Active Substance: VALSARTAN
  3. BRILINTA [Suspect]
     Active Substance: TICAGRELOR
     Indication: ANGINA PECTORIS
     Route: 048
     Dates: start: 20170911
  4. CONCOR [Concomitant]
     Active Substance: BISOPROLOL FUMARATE
  5. NOLPAZA [Concomitant]
     Active Substance: PANTOPRAZOLE SODIUM
  6. ATORVASTATIN [Concomitant]
     Active Substance: ATORVASTATIN
  7. VEROSPIRON [Concomitant]
     Active Substance: SPIRONOLACTONE

REACTIONS (9)
  - Blood count abnormal [Unknown]
  - Radiculopathy [Unknown]
  - Gastrointestinal haemorrhage [Unknown]
  - Contusion [Unknown]
  - Influenza [Recovered/Resolved]
  - Gastric ulcer [Unknown]
  - Haemoglobin decreased [Not Recovered/Not Resolved]
  - Off label use [Unknown]
  - Product use in unapproved indication [Unknown]

NARRATIVE: CASE EVENT DATE: 201804
